FAERS Safety Report 6106406-7 (Version None)
Quarter: 2009Q1

REPORT INFORMATION
  Report Type: 
  Country: None (occurrence: None)
  Receive Date: 20090306
  Receipt Date: 20090304
  Transmission Date: 20090719
  Serious: Yes (Life-Threatening, Hospitalization)
  Sender: FDA-Public Use
  Company Number: US-B.I. PHARMACEUTICALS,INC./RIDGEFIELD-2009-BP-00554BP

PATIENT
  Sex: Female

DRUGS (31)
  1. SPIRIVA [Suspect]
     Indication: CHRONIC OBSTRUCTIVE PULMONARY DISEASE
     Dosage: 18MCG
     Route: 055
     Dates: start: 20080101
  2. SPIRIVA [Suspect]
     Indication: EMPHYSEMA
  3. MORPHINE [Suspect]
  4. HUMULIN R [Concomitant]
     Indication: DIABETES MELLITUS
  5. HUMULIN N [Concomitant]
     Indication: DIABETES MELLITUS
  6. AMBIEN [Concomitant]
  7. PREDNISONE [Concomitant]
  8. FLUTICASONE PROPIONATE [Concomitant]
  9. COUMADIN [Concomitant]
     Dosage: 5MG
  10. IMDUR [Concomitant]
  11. POLYETH [Concomitant]
     Dosage: 17MG
  12. LORAZEPAM [Concomitant]
  13. LORATADINE [Concomitant]
  14. SENNA PLUS [Concomitant]
  15. LASIX [Concomitant]
     Indication: CARDIAC FAILURE CONGESTIVE
     Dosage: 40MG
  16. ASPIRIN [Concomitant]
     Dosage: 81MG
  17. NEURONTIN [Concomitant]
  18. ISOSORBIDE [Concomitant]
  19. SALINE NOSE SPRAY [Concomitant]
  20. XOPENEX [Concomitant]
  21. ROBITUSSIN EX [Concomitant]
  22. ROBITUSSIN DM [Concomitant]
  23. HYOSCYAMINE [Concomitant]
     Route: 048
  24. FAMOTIDINE [Concomitant]
  25. GLYBURIDE [Concomitant]
  26. LOVASTATIN [Concomitant]
  27. KLOR-CON [Concomitant]
  28. PROAIR HFA [Concomitant]
  29. NASACORT [Concomitant]
  30. GABAPENTIN/KETOPROFEN [Concomitant]
  31. MUCINEX [Concomitant]

REACTIONS (16)
  - BLOOD DISORDER [None]
  - BLOOD POTASSIUM INCREASED [None]
  - CARDIAC FAILURE [None]
  - COMA [None]
  - DIABETES MELLITUS [None]
  - DYSPHAGIA [None]
  - DYSPNOEA [None]
  - HEART RATE INCREASED [None]
  - INCREASED UPPER AIRWAY SECRETION [None]
  - LOWER RESPIRATORY TRACT INFECTION [None]
  - LUNG DISORDER [None]
  - OEDEMA MOUTH [None]
  - PCO2 INCREASED [None]
  - PHARYNGEAL OEDEMA [None]
  - PNEUMONIA [None]
  - SINUS DISORDER [None]
